FAERS Safety Report 5607455-5 (Version None)
Quarter: 2008Q1

REPORT INFORMATION
  Report Type: 
  Country: None (occurrence: None)
  Receive Date: 20080130
  Receipt Date: 20071212
  Transmission Date: 20080703
  Serious: Yes (Life-Threatening, Hospitalization)
  Sender: FDA-Public Use
  Company Number: JP-BAYER-200716853GDS

PATIENT
  Age: 80 Year
  Sex: Female
  Weight: 34 kg

DRUGS (7)
  1. ASPIRIN [Suspect]
     Indication: CORONARY ARTERIAL STENT INSERTION
     Route: 048
     Dates: start: 20060508, end: 20060706
  2. TICLOPIDINE HCL [Suspect]
     Indication: CORONARY ARTERIAL STENT INSERTION
     Route: 048
     Dates: start: 20060523, end: 20060706
  3. WARFARIN SODIUM [Suspect]
     Indication: ATRIAL FIBRILLATION
     Route: 048
     Dates: start: 20060509, end: 20060612
  4. COVERSYL [Concomitant]
     Indication: DRUG USE FOR UNKNOWN INDICATION
     Route: 048
     Dates: start: 20060508
  5. DILTIAZEM HCL [Concomitant]
     Indication: DRUG USE FOR UNKNOWN INDICATION
     Route: 048
     Dates: start: 20060510
  6. LASIX [Concomitant]
     Indication: DRUG USE FOR UNKNOWN INDICATION
     Route: 048
     Dates: start: 20060512
  7. TAKEPRON OD [Concomitant]
     Indication: DRUG USE FOR UNKNOWN INDICATION
     Route: 048
     Dates: start: 20060516

REACTIONS (3)
  - GASTRIC ULCER [None]
  - GASTROINTESTINAL HAEMORRHAGE [None]
  - HAEMORRHAGIC ANAEMIA [None]
